FAERS Safety Report 6178621-8 (Version None)
Quarter: 2009Q2

REPORT INFORMATION
  Report Type: 
  Country: None (occurrence: None)
  Receive Date: 20090430
  Receipt Date: 20090421
  Transmission Date: 20091009
  Serious: Yes (Life-Threatening)
  Sender: FDA-Public Use
  Company Number: 2008US003462

PATIENT
  Age: 14 Year
  Sex: Male
  Weight: 75.5 kg

DRUGS (22)
  1. AMBISOME [Suspect]
     Indication: BRONCHOPULMONARY ASPERGILLOSIS
     Dosage: 350 MG, UID/QD, IV NOS
     Route: 042
     Dates: start: 20080909, end: 20080923
  2. FUNGUARD(MICAFUNGIN) INJECTION [Suspect]
     Indication: FUNGAL INFECTION
     Dosage: 150 MG, UID/QD, IV NOS
     Route: 042
     Dates: start: 20080905, end: 20080908
  3. VFEND [Suspect]
     Indication: BRONCHOPULMONARY ASPERGILLOSIS
     Dosage: 400 MG, UID/QD, IV NOS; 200 MG, BID, IV NOS
     Route: 042
     Dates: start: 20080917, end: 20080918
  4. VFEND [Suspect]
     Indication: BRONCHOPULMONARY ASPERGILLOSIS
     Dosage: 400 MG, UID/QD, IV NOS; 200 MG, BID, IV NOS
     Route: 042
     Dates: start: 20080918, end: 20080924
  5. AMIODARONE HCL [Suspect]
     Indication: DRUG USE FOR UNKNOWN INDICATION
  6. AMIKACIN SULFATE [Suspect]
     Indication: SEPSIS
     Dosage: 400 MG, UID/QD, IV NOS; 200 MG, UID/QD, IV NOS
     Route: 042
     Dates: start: 20080803, end: 20080903
  7. AMIKACIN SULFATE [Suspect]
     Indication: SEPSIS
     Dosage: 400 MG, UID/QD, IV NOS; 200 MG, UID/QD, IV NOS
     Route: 042
     Dates: start: 20080921
  8. NEUTROGIN(LENOGRASTIM) [Suspect]
     Indication: WHITE BLOOD CELL COUNT DECREASED
     Dosage: 250 UG, UID/QD, IV NOS; 450 UG, UID/QD, IV NOS
     Route: 042
     Dates: start: 20080825, end: 20080909
  9. NEUTROGIN(LENOGRASTIM) [Suspect]
     Indication: WHITE BLOOD CELL COUNT DECREASED
     Dosage: 250 UG, UID/QD, IV NOS; 450 UG, UID/QD, IV NOS
     Route: 042
     Dates: start: 20080910
  10. FOY(GABEXATE MESILATE) [Suspect]
     Indication: DISSEMINATED INTRAVASCULAR COAGULATION
     Dosage: 1500 MG, UID/QD, IV NOS
     Route: 042
     Dates: start: 20080827
  11. CEFTAZIDIME [Suspect]
     Indication: SEPSIS
     Dosage: 4 G, UID/QD, IV NOS
     Route: 042
     Dates: start: 20080917
  12. DOPAMINE HYDROCHLORIDE [Concomitant]
  13. MEROPEN (MEROPENEM TRIHYDRATE) [Concomitant]
  14. VANCOMYCIN HYDROCHLORIDE [Concomitant]
  15. RED BLOOD CELLS [Concomitant]
  16. PLATELETS [Concomitant]
  17. IMMUNE GLOBULIN INTRAVENOUS (HUMAN) [Concomitant]
  18. ALBUMIN (HUMAN) [Concomitant]
  19. HABEKACIN (ARBEKACIN SULFATE) [Concomitant]
  20. FIRSTCIN (CEFOZOPRAN HYDROCHLORIDE) [Concomitant]
  21. BLOOD AND RELATED PRODUCTS [Concomitant]
  22. HAPTOGLOBINS (HAPTOGLOBINS) [Concomitant]

REACTIONS (7)
  - ACUTE LYMPHOCYTIC LEUKAEMIA [None]
  - BRONCHOPULMONARY ASPERGILLOSIS [None]
  - CONDITION AGGRAVATED [None]
  - RENAL IMPAIRMENT [None]
  - RESPIRATORY FAILURE [None]
  - TORSADE DE POINTES [None]
  - VENTRICULAR FIBRILLATION [None]
